FAERS Safety Report 5393480-9 (Version None)
Quarter: 2007Q3

REPORT INFORMATION
  Report Type: 
  Country: None (occurrence: None)
  Receive Date: 20070723
  Receipt Date: 20060620
  Transmission Date: 20080115
  Serious: No
  Sender: FDA-Public Use
  Company Number: A0609455A

PATIENT
  Sex: Male

DRUGS (2)
  1. AVANDIA [Suspect]
     Indication: DRUG USE FOR UNKNOWN INDICATION
     Route: 048
  2. COREG [Concomitant]

REACTIONS (4)
  - DYSPNOEA [None]
  - FATIGUE [None]
  - MUSCULOSKELETAL CHEST PAIN [None]
  - PALMAR ERYTHEMA [None]
